FAERS Safety Report 4456756-5 (Version None)
Quarter: 2004Q3

REPORT INFORMATION
  Report Type: 
  Country: None (occurrence: None)
  Receive Date: 20040921
  Receipt Date: 20040908
  Transmission Date: 20050211
  Serious: Yes (Disabling)
  Sender: FDA-Public Use
  Company Number: 2004CG01808

PATIENT
  Age: 77 Year
  Sex: Male

DRUGS (2)
  1. CASODEX [Suspect]
     Indication: PROSTATE CANCER
     Dosage: 50 MG DAILY PO
     Route: 048
     Dates: start: 20040601, end: 20040601
  2. RIVOTRIL [Concomitant]

REACTIONS (2)
  - ARTHRALGIA [None]
  - MUSCLE CONTRACTURE [None]
